FAERS Safety Report 15324052 (Version 4)
Quarter: 2022Q1

REPORT INFORMATION
  Report Type: Report from Study
  Country: CA (occurrence: CA)
  Receive Date: 20180828
  Receipt Date: 20220131
  Transmission Date: 20220423
  Serious: Yes (Hospitalization, Other)
  Sender: FDA-Public Use
  Company Number: CA-ABBVIE-18K-028-2463402-00

PATIENT
  Sex: Female

DRUGS (4)
  1. HUMIRA [Suspect]
     Active Substance: ADALIMUMAB
     Indication: Psoriatic arthropathy
     Route: 058
     Dates: start: 20091212
  2. HUMIRA [Suspect]
     Active Substance: ADALIMUMAB
     Route: 058
  3. HUMIRA [Suspect]
     Active Substance: ADALIMUMAB
     Route: 058
  4. CORTISONE [Concomitant]
     Active Substance: CORTISONE
     Indication: Product used for unknown indication

REACTIONS (24)
  - Fall [Recovered/Resolved]
  - Exposure to extreme temperature [Recovered/Resolved]
  - Concussion [Unknown]
  - Skin discolouration [Unknown]
  - Musculoskeletal disorder [Not Recovered/Not Resolved]
  - Heat stroke [Unknown]
  - Grip strength decreased [Not Recovered/Not Resolved]
  - Mobility decreased [Unknown]
  - Pulmonary mass [Unknown]
  - Lacrimation increased [Unknown]
  - Accident [Unknown]
  - Finger deformity [Unknown]
  - Hand fracture [Not Recovered/Not Resolved]
  - Fatigue [Unknown]
  - Upper limb fracture [Unknown]
  - Syncope [Unknown]
  - Balance disorder [Unknown]
  - Loss of personal independence in daily activities [Unknown]
  - Arthralgia [Not Recovered/Not Resolved]
  - Upper limb fracture [Unknown]
  - Fibromyalgia [Unknown]
  - Pain in extremity [Unknown]
  - Swelling face [Not Recovered/Not Resolved]
  - Muscular weakness [Not Recovered/Not Resolved]

NARRATIVE: CASE EVENT DATE: 20180101
